APPROVED DRUG PRODUCT: THIORIDAZINE HYDROCHLORIDE
Active Ingredient: THIORIDAZINE HYDROCHLORIDE
Strength: 200MG
Dosage Form/Route: TABLET;ORAL
Application: A088738 | Product #001
Applicant: SUN PHARMACEUTICAL INDUSTRIES INC
Approved: Oct 16, 1984 | RLD: No | RS: No | Type: DISCN